FAERS Safety Report 5638095-X (Version None)
Quarter: 2008Q1

REPORT INFORMATION
  Report Type: 
  Country: None (occurrence: None)
  Receive Date: 20080222
  Receipt Date: 20080222
  Transmission Date: 20080703
  Serious: No
  Sender: FDA-Public Use
  Company Number: None

PATIENT
  Age: 48 Year
  Sex: Female
  Weight: 52.6173 kg

DRUGS (2)
  1. CYMBALTA [Suspect]
     Indication: ARTHRALGIA
     Dosage: 60 MG DAILY PO 30 MG DAILY PO
     Route: 048
     Dates: start: 20070709, end: 20080214
  2. CYMBALTA [Suspect]
     Indication: GENERALISED ANXIETY DISORDER
     Dosage: 60 MG DAILY PO 30 MG DAILY PO
     Route: 048
     Dates: start: 20070709, end: 20080214

REACTIONS (7)
  - DIZZINESS [None]
  - DRUG WITHDRAWAL SYNDROME [None]
  - FATIGUE [None]
  - INJURY [None]
  - NAUSEA [None]
  - PAIN [None]
  - PARAESTHESIA [None]
